FAERS Safety Report 8597041-X (Version None)
Quarter: 2012Q3

REPORT INFORMATION
  Report Type: 
  Country: None (occurrence: None)
  Receive Date: 20120816
  Receipt Date: 20120808
  Transmission Date: 20120928
  Serious: Yes (Death)
  Sender: FDA-Public Use
  Company Number: FR-AMGEN-FRASP2012050849

PATIENT
  Age: 54 Year
  Sex: Female

DRUGS (11)
  1. MABTHERA [Suspect]
     Indication: RHEUMATOID ARTHRITIS
     Dosage: 1 G, 2X/DAY, CYCLIC
     Route: 042
     Dates: start: 20100505, end: 20100505
  2. MABTHERA [Suspect]
  3. VITAMIN D [Concomitant]
  4. ALDACTONE [Concomitant]
  5. MABTHERA [Suspect]
     Dosage: 2 G, CYCLIC
     Route: 042
     Dates: start: 20110401, end: 20110401
  6. MABTHERA [Suspect]
     Dosage: 1 G, 2X/DAY, CYCLIC
     Route: 042
     Dates: start: 20100520, end: 20100520
  7. LEVOTHYROXINE SODIUM [Concomitant]
  8. ENBREL [Suspect]
     Indication: RHEUMATOID ARTHRITIS
     Dosage: 25 MG, WEEKLY
     Route: 058
     Dates: start: 20051201, end: 20061001
  9. METHOTREXATE SODIUM [Suspect]
     Indication: RHEUMATOID ARTHRITIS
     Dosage: UNK
     Route: 048
     Dates: start: 19970101
  10. METHOTREXATE SODIUM [Suspect]
     Dosage: UNK
     Route: 048
     Dates: start: 19990101, end: 20110801
  11. HUMIRA [Suspect]
     Indication: RHEUMATOID ARTHRITIS
     Dosage: UNK
     Route: 058
     Dates: start: 20061001, end: 20100501

REACTIONS (1)
  - MIXED HEPATOCELLULAR CHOLANGIOCARCINOMA [None]
